FAERS Safety Report 18908511 (Version 1)
Quarter: 2021Q1

REPORT INFORMATION
  Report Type: Spontaneous
  Country: US (occurrence: US)
  Receive Date: 20210218
  Receipt Date: 20210218
  Transmission Date: 20210420
  Serious: No
  Sender: FDA-Public Use
  Company Number: US-PFIZER INC-2021144394

PATIENT
  Age: 59 Year
  Sex: Female
  Weight: 54.88 kg

DRUGS (1)
  1. IBRANCE [Suspect]
     Active Substance: PALBOCICLIB
     Indication: BREAST CANCER FEMALE
     Dosage: 100 MG, CYCLIC (1 DAILY FOR 21 DAYS)
     Route: 048
     Dates: start: 20200708

REACTIONS (4)
  - Sleep disorder [Recovering/Resolving]
  - Anxiety [Unknown]
  - Panic attack [Unknown]
  - Fatigue [Unknown]
